FAERS Safety Report 15112847 (Version 1)
Quarter: 2018Q4

REPORT INFORMATION
  Report Type: Spontaneous
  Country: US (occurrence: US)
  Receive Date: 20180705
  Receipt Date: 20180705
  Transmission Date: 20190204
  Serious: No
  Sender: FDA-Public Use
  Company Number: US-ZYDUS-020064

PATIENT
  Age: 9 Year
  Sex: Male

DRUGS (1)
  1. OSELTAMIVIR/OSELTAMIVIR PHOSPHATE [Suspect]
     Active Substance: OSELTAMIVIR PHOSPHATE
     Indication: INFLUENZA
     Dosage: OSELTAMIVIR SUSPSENSION,6MG/ML
     Route: 048
     Dates: start: 20180306, end: 20180311

REACTIONS (1)
  - Abnormal behaviour [Recovered/Resolved]

NARRATIVE: CASE EVENT DATE: 20180307
